FAERS Safety Report 12821628 (Version 1)
Quarter: 2016Q4

REPORT INFORMATION
  Report Type: Spontaneous
  Country: DE (occurrence: DE)
  Receive Date: 20161007
  Receipt Date: 20161007
  Transmission Date: 20170207
  Serious: Yes (Other)
  Sender: FDA-Public Use
  Company Number: DE-SUN PHARMACEUTICAL INDUSTRIES LTD-2016RR-125096

PATIENT
  Age: 3 Week
  Sex: Male
  Weight: 3.7 kg

DRUGS (4)
  1. FEMIBION [Concomitant]
     Active Substance: VITAMINS
     Indication: VITAMIN SUPPLEMENTATION
     Dosage: 11.2.-38.11 GESTATIONAL WEEK
     Route: 064
     Dates: start: 20151201, end: 20160606
  2. VENLAFAXINE [Suspect]
     Active Substance: VENLAFAXINE HYDROCHLORIDE
     Dosage: 75 UNK, UNK
     Route: 064
  3. VENLAFAXINE [Suspect]
     Active Substance: VENLAFAXINE HYDROCHLORIDE
     Indication: DEPRESSION
     Dosage: 0.-38.1. GESTATIONAL WEEK
     Route: 064
     Dates: start: 20150913, end: 20160606
  4. VOMEX A SUPPOSITORIEN [Suspect]
     Active Substance: DIMENHYDRINATE
     Indication: VOMITING IN PREGNANCY
     Dosage: TRIMESTER: LONG TERM EXPOSURE, FREQUENCY NOT KNOWN
     Route: 064

REACTIONS (1)
  - Pyloric stenosis [Recovered/Resolved with Sequelae]
